FAERS Safety Report 12778292 (Version 1)
Quarter: 2016Q3

REPORT INFORMATION
  Report Type: Spontaneous
  Country: CA (occurrence: CA)
  Receive Date: 20160926
  Receipt Date: 20160926
  Transmission Date: 20161109
  Serious: Yes (Other)
  Sender: FDA-Public Use
  Company Number: CA-ROCHE-1831854

PATIENT
  Age: 57 Year
  Sex: Female

DRUGS (6)
  1. ZENHALE [Concomitant]
     Active Substance: FORMOTEROL FUMARATE\MOMETASONE FUROATE
     Indication: PRODUCT USED FOR UNKNOWN INDICATION
     Route: 065
  2. XOLAIR [Suspect]
     Active Substance: OMALIZUMAB
     Indication: ASTHMA
     Dosage: 150 MG, Q 4 WEEKS
     Route: 058
     Dates: start: 20160707
  3. SEEBRI [Suspect]
     Active Substance: GLYCOPYRRONIUM
     Indication: PRODUCT USED FOR UNKNOWN INDICATION
     Dosage: 50 UG, QD?REPORTED AS SEEBRI BREEZHALER
     Route: 065
     Dates: start: 20160616
  4. SINGULAIR [Concomitant]
     Active Substance: MONTELUKAST SODIUM
     Indication: PRODUCT USED FOR UNKNOWN INDICATION
     Route: 065
  5. NASONEX [Concomitant]
     Active Substance: MOMETASONE FUROATE
     Indication: PRODUCT USED FOR UNKNOWN INDICATION
     Route: 065
  6. XOLAIR [Suspect]
     Active Substance: OMALIZUMAB
     Dosage: UNK
     Route: 058
     Dates: start: 20160808

REACTIONS (10)
  - Dyspnoea [Unknown]
  - Malaise [Recovering/Resolving]
  - Asthma [Unknown]
  - Chest discomfort [Unknown]
  - Injection related reaction [Unknown]
  - Arteriospasm coronary [Not Recovered/Not Resolved]
  - Blood pressure increased [Unknown]
  - Asthenia [Unknown]
  - Fatigue [Unknown]
  - Chest pain [Not Recovered/Not Resolved]

NARRATIVE: CASE EVENT DATE: 20160808
